FAERS Safety Report 10404224 (Version 2)
Quarter: 2014Q1

REPORT INFORMATION
  Report Type: Spontaneous
  Country: US (occurrence: None)
  Receive Date: 20140122
  Receipt Date: 20140128
  Transmission Date: 20141002
  Serious: Yes (Hospitalization)
  Sender: FDA-Public Use
  Company Number: A-US2011-57903

PATIENT
  Age: 33 Year
  Sex: Male

DRUGS (3)
  1. TRACLEER (BOSENTAN) TABLET [Suspect]
     Indication: PULMONARY ARTERIAL HYPERTENSION
     Route: 048
  2. COUMADIN (WARFARIN SODIUM) [Concomitant]
  3. REMODULIN (TREPROSTINIL SODIUM) [Concomitant]

REACTIONS (4)
  - Dyspnoea [None]
  - Panic attack [None]
  - Weight increased [None]
  - Oedema peripheral [None]
